FAERS Safety Report 10786703 (Version 3)
Quarter: 2015Q1

REPORT INFORMATION
  Report Type: Spontaneous
  Country: JP (occurrence: JP)
  Receive Date: 20150211
  Receipt Date: 20150302
  Transmission Date: 20150721
  Serious: Yes (Other)
  Sender: FDA-Public Use
  Company Number: JP-PFIZER INC-2015049183

PATIENT
  Sex: Male

DRUGS (3)
  1. DETRUSITOL [Suspect]
     Active Substance: TOLTERODINE TARTRATE
     Dosage: UNK
     Route: 048
     Dates: start: 20140126
  2. PARIET [Suspect]
     Active Substance: RABEPRAZOLE SODIUM
     Dosage: UNK
     Route: 048
  3. DEPAKENE [Suspect]
     Active Substance: VALPROIC ACID
     Dosage: 200 MG, UNK
     Route: 048

REACTIONS (2)
  - Delirium [Unknown]
  - Movement disorder [Unknown]

NARRATIVE: CASE EVENT DATE: 20150209
